FAERS Safety Report 5338195-8 (Version None)
Quarter: 2007Q2

REPORT INFORMATION
  Report Type: 
  Country: None (occurrence: None)
  Receive Date: 20070327
  Receipt Date: 20070222
  Transmission Date: 20071010
  Serious: Yes (Other)
  Sender: FDA-Public Use
  Company Number: 235973

PATIENT
  Age: 59 Year
  Sex: Female
  Weight: 78.5 kg

DRUGS (4)
  1. AVASTIN [Suspect]
     Indication: COLORECTAL CANCER
     Dosage: 325 MG, Q2W, INTRAVENOUS
     Route: 042
     Dates: start: 20050719
  2. OXALIPOLATIN (OXALIPLATIN) [Concomitant]
  3. XELODA [Concomitant]
  4. CAMPTOSAR [Concomitant]

REACTIONS (1)
  - PANCYTOPENIA [None]
